FAERS Safety Report 6682691-8 (Version None)
Quarter: 2010Q2

REPORT INFORMATION
  Report Type: 
  Country: None (occurrence: None)
  Receive Date: 20100413
  Receipt Date: 20100329
  Transmission Date: 20101027
  Serious: Yes (Hospitalization)
  Sender: FDA-Public Use
  Company Number: JPI-P-009897

PATIENT
  Age: 58 Year
  Sex: Female
  Weight: 64.8644 kg

DRUGS (14)
  1. XYREM [Suspect]
     Indication: CATAPLEXY
     Dosage: 6 GM (3 GM, 2 IN 1 D), ORAL; 3 GM (3 GM, 1 IN 1 D), ORAL; 6 GM (3 GM, 2 IN 1 D), ORAL
     Route: 048
     Dates: start: 20100209, end: 20100101
  2. XYREM [Suspect]
     Indication: CATAPLEXY
     Dosage: 6 GM (3 GM, 2 IN 1 D), ORAL; 3 GM (3 GM, 1 IN 1 D), ORAL; 6 GM (3 GM, 2 IN 1 D), ORAL
     Route: 048
     Dates: start: 20100127, end: 20100208
  3. XYREM [Suspect]
     Indication: CATAPLEXY
     Dosage: 6 GM (3 GM, 2 IN 1 D), ORAL; 3 GM (3 GM, 1 IN 1 D), ORAL; 6 GM (3 GM, 2 IN 1 D), ORAL
     Route: 048
     Dates: start: 20100101
  4. CLONAZEPAM [Suspect]
     Indication: PANIC ATTACK
     Dosage: (2 MG, 1 D); (1.5 MG, 1 D)
     Dates: end: 20100209
  5. CLONAZEPAM [Suspect]
     Indication: PANIC ATTACK
     Dosage: (2 MG, 1 D); (1.5 MG, 1 D)
     Dates: start: 20100210
  6. DULOXETINE HYDROCHLORIDE [Concomitant]
     Indication: DEPRESSION
     Dosage: (60 MG), (60 MG), ORAL
     Route: 048
     Dates: end: 20100201
  7. DULOXETINE HYDROCHLORIDE [Concomitant]
     Indication: DEPRESSION
     Dosage: (60 MG), (60 MG), ORAL
     Route: 048
     Dates: start: 20100325
  8. ESTERIFIED ESTROGENS AND METHYLTESTOSTERONE [Concomitant]
  9. BUPROPION [Concomitant]
  10. OXYCODONE [Concomitant]
  11. LEVOTHYROXINE [Concomitant]
  12. MONTELUKAST SODIUM [Concomitant]
  13. CALCIUM WITH VITAMIN D [Concomitant]
  14. METHYLPHENIDATE [Concomitant]

REACTIONS (14)
  - ANXIETY [None]
  - BALANCE DISORDER [None]
  - BLADDER PAIN [None]
  - BLOOD URINE PRESENT [None]
  - CONDITION AGGRAVATED [None]
  - DEPRESSION [None]
  - DYSKINESIA [None]
  - INITIAL INSOMNIA [None]
  - PANIC ATTACK [None]
  - SOMNOLENCE [None]
  - SPEECH DISORDER [None]
  - SUICIDAL IDEATION [None]
  - TREMOR [None]
  - URINE ODOUR ABNORMAL [None]
